FAERS Safety Report 15099751 (Version 2)
Quarter: 2018Q4

REPORT INFORMATION
  Report Type: Report from Study
  Country: US (occurrence: US)
  Receive Date: 20180702
  Receipt Date: 20181030
  Transmission Date: 20190204
  Serious: Yes (Other)
  Sender: FDA-Public Use
  Company Number: US-AMGEN-USASP2018087630

PATIENT
  Age: 58 Year
  Sex: Female

DRUGS (2)
  1. ENBREL [Suspect]
     Active Substance: ETANERCEPT
     Dosage: 50 MG, 2 TIMES/WK
     Route: 065
     Dates: start: 201806
  2. ENBREL [Suspect]
     Active Substance: ETANERCEPT
     Indication: PSORIATIC ARTHROPATHY
     Dosage: 50 MG, QWK
     Route: 065
     Dates: start: 2016, end: 2017

REACTIONS (4)
  - Foot fracture [Not Recovered/Not Resolved]
  - Off label use [Unknown]
  - Skin cancer [Unknown]
  - Limb injury [Unknown]

NARRATIVE: CASE EVENT DATE: 201708
